FAERS Safety Report 7545622-4 (Version None)
Quarter: 2011Q2

REPORT INFORMATION
  Report Type: 
  Country: None (occurrence: None)
  Receive Date: 20110613
  Receipt Date: 20110613
  Transmission Date: 20111010
  Serious: Yes (Hospitalization)
  Sender: FDA-Public Use
  Company Number: None

PATIENT
  Age: 62 Year
  Sex: Female

DRUGS (10)
  1. AMLODIPINE [Concomitant]
  2. K-TAB [Concomitant]
  3. OXYCODONE HCL [Concomitant]
  4. AVELOX [Concomitant]
  5. REVLIMID [Suspect]
     Indication: MULTIPLE MYELOMA
     Dosage: REVLIMID 15MG DAILY ORAL
     Route: 048
     Dates: start: 20100111, end: 20100328
  6. COUMADIN [Concomitant]
  7. LOVASTATIN [Concomitant]
  8. ATENOLOL [Concomitant]
  9. DEXAMETHASONE [Concomitant]
  10. HYDROCHLOROTHIAZIDE [Concomitant]

REACTIONS (7)
  - ESCHERICHIA TEST POSITIVE [None]
  - CHILLS [None]
  - PYREXIA [None]
  - ASTHENIA [None]
  - NEOPLASM PROGRESSION [None]
  - PANCYTOPENIA [None]
  - MULTIPLE MYELOMA [None]
